FAERS Safety Report 25255919 (Version 4)
Quarter: 2025Q4

REPORT INFORMATION
  Report Type: Spontaneous
  Country: CA (occurrence: CA)
  Receive Date: 20250430
  Receipt Date: 20251229
  Transmission Date: 20260117
  Serious: Yes (Other)
  Sender: PFIZER
  Company Number: CA-PFIZER INC-202500088551

PATIENT
  Age: 69 Year
  Sex: Female
  Weight: 64 kg

DRUGS (10)
  1. RUXIENCE [Suspect]
     Active Substance: RITUXIMAB-PVVR
     Indication: Rheumatoid arthritis
     Dosage: 1000 MG, DAY1 AND DAY 15
     Route: 042
     Dates: start: 20240424, end: 20240508
  2. RUXIENCE [Suspect]
     Active Substance: RITUXIMAB-PVVR
     Dosage: 1000 MG, DAY1 AND DAY 15
     Route: 042
     Dates: start: 20241120, end: 20241204
  3. RUXIENCE [Suspect]
     Active Substance: RITUXIMAB-PVVR
     Dosage: 1000 MG, DAY1 AND DAY 15
     Route: 042
     Dates: start: 20250611, end: 20250625
  4. COSMETICS [Concomitant]
     Active Substance: COSMETICS
     Dosage: UNK
  5. DASATINIB [Concomitant]
     Active Substance: DASATINIB
     Indication: Chronic myeloid leukaemia
     Dosage: UNK
     Dates: start: 2009
  6. ENSURE [Concomitant]
     Active Substance: AMINO ACIDS\DEXTROSE\ELECTROLYTES NOS\SOYBEAN OIL\VITAMINS
     Dosage: UNK
  7. FUROSEMIDE [Concomitant]
     Active Substance: FUROSEMIDE
     Dosage: 20 MG, DAILY
  8. MACITENTAN [Concomitant]
     Active Substance: MACITENTAN
     Dosage: 10 MG, DAILY
     Dates: start: 202101
  9. NIFEDIPINE [Concomitant]
     Active Substance: NIFEDIPINE
     Dosage: 30 MG, DAILY
  10. TADALAFIL [Concomitant]
     Active Substance: TADALAFIL
     Dosage: 20 MG, DAILY
     Dates: start: 202202

REACTIONS (15)
  - Tricuspid valve incompetence [Unknown]
  - Therapeutic product effect decreased [Unknown]
  - Right ventricular hypertrophy [Unknown]
  - Forced vital capacity increased [Unknown]
  - Forced expiratory volume increased [Unknown]
  - Lung diffusion test abnormal [Unknown]
  - Dyspepsia [Unknown]
  - Diarrhoea [Recovering/Resolving]
  - Constipation [Recovering/Resolving]
  - Condition aggravated [Recovering/Resolving]
  - Blood pressure diastolic decreased [Unknown]
  - Dry skin [Unknown]
  - Weight decreased [Unknown]
  - Blood creatine phosphokinase increased [Unknown]
  - Dyspnoea [Unknown]

NARRATIVE: CASE EVENT DATE: 20240101
